FAERS Safety Report 5833983-3 (Version None)
Quarter: 2008Q3

REPORT INFORMATION
  Report Type: 
  Country: None (occurrence: None)
  Receive Date: 20080801
  Receipt Date: 20080801
  Transmission Date: 20090109
  Serious: Yes (Other)
  Sender: FDA-Public Use
  Company Number: None

PATIENT
  Age: 71 Year
  Sex: Male
  Weight: 108.8633 kg

DRUGS (1)
  1. NON-DROWSY TUSSIN DM [Suspect]
     Dosage: TWO TSP. EVERY 4 HRS. PO
     Route: 048
     Dates: start: 20080717, end: 20080717

REACTIONS (3)
  - EXPIRED DRUG ADMINISTERED [None]
  - PHARMACEUTICAL PRODUCT COMPLAINT [None]
  - THROAT IRRITATION [None]
